FAERS Safety Report 7791515-7 (Version None)
Quarter: 2011Q4

REPORT INFORMATION
  Report Type: 
  Country: None (occurrence: None)
  Receive Date: 20111003
  Receipt Date: 20110920
  Transmission Date: 20120403
  Serious: Yes (Hospitalization)
  Sender: FDA-Public Use
  Company Number: US-BAYER-2011-018870

PATIENT
  Age: 27 Year
  Sex: Female
  Weight: 154 kg

DRUGS (5)
  1. YAZ [Suspect]
     Indication: ACNE
     Dosage: UNK
     Dates: start: 20000101, end: 20090701
  2. DROSPIRENONE AND ETHINYL ESTRADIOL [Suspect]
     Indication: ACNE
     Dosage: UNK
     Dates: start: 20000101, end: 20090701
  3. YASMIN [Suspect]
     Indication: ACNE
     Dosage: UNK
     Dates: start: 20000101, end: 20090701
  4. MOTRIN [Concomitant]
     Dosage: UNK
     Dates: start: 19960101
  5. VALTREX [Concomitant]
     Indication: FURUNCLE
     Dosage: UNK
     Dates: start: 20080101

REACTIONS (2)
  - INJURY [None]
  - GALLBLADDER DISORDER [None]
